FAERS Safety Report 7248471-X (Version None)
Quarter: 2011Q1

REPORT INFORMATION
  Report Type: 
  Country: None (occurrence: None)
  Receive Date: 20110127
  Receipt Date: 20110120
  Transmission Date: 20110831
  Serious: Yes (Hospitalization)
  Sender: FDA-Public Use
  Company Number: US-US-EMD SERONO, INC.-7038055

PATIENT
  Sex: Male

DRUGS (1)
  1. REBIF [Suspect]
     Indication: MULTIPLE SCLEROSIS
     Route: 058
     Dates: start: 20100305

REACTIONS (7)
  - CHILLS [None]
  - DEPRESSION [None]
  - ROAD TRAFFIC ACCIDENT [None]
  - MULTIPLE SCLEROSIS RELAPSE [None]
  - INJECTION SITE REACTION [None]
  - FATIGUE [None]
  - INTERVERTEBRAL DISC PROTRUSION [None]
